FAERS Safety Report 12519936 (Version 2)
Quarter: 2016Q4

REPORT INFORMATION
  Report Type: Spontaneous
  Country: JP (occurrence: JP)
  Receive Date: 20160630
  Receipt Date: 20161214
  Transmission Date: 20170207
  Serious: Yes (Hospitalization, Other)
  Sender: FDA-Public Use
  Company Number: JP-PFIZER INC-2016318159

PATIENT
  Age: 61 Year
  Sex: Male
  Weight: 62.4 kg

DRUGS (3)
  1. LYRICA [Suspect]
     Active Substance: PREGABALIN
     Indication: MUSCULOSKELETAL DISORDER
     Dosage: 75 MG, 1X/DAY
     Route: 048
     Dates: start: 201509, end: 20160117
  2. NIFEDIPINE CR [Suspect]
     Active Substance: NIFEDIPINE
     Indication: PRINZMETAL ANGINA
     Dosage: 40 MG, DAILY
     Route: 048
     Dates: start: 20151230, end: 20160117
  3. NICORANDIL [Concomitant]
     Active Substance: NICORANDIL
     Indication: PRINZMETAL ANGINA
     Dosage: 10 MG, DAILY
     Route: 048
     Dates: start: 20160113

REACTIONS (1)
  - Agranulocytosis [Not Recovered/Not Resolved]

NARRATIVE: CASE EVENT DATE: 20160118
